FAERS Safety Report 4538425-6 (Version None)
Quarter: 2004Q4

REPORT INFORMATION
  Report Type: 
  Country: None (occurrence: None)
  Receive Date: 20041223
  Receipt Date: 20041223
  Transmission Date: 20050328
  Serious: Yes (Hospitalization)
  Sender: FDA-Public Use
  Company Number: None

PATIENT
  Sex: Male
  Weight: 79.3795 kg

DRUGS (15)
  1. TAXOTERE [Suspect]
     Indication: PROSTATE CANCER
     Dosage: 90 MG, Q 14 DAYS IV
     Route: 042
     Dates: start: 20041104
  2. PREDNISONE [Suspect]
     Indication: PROSTATE CANCER
     Dosage: 10 MG QD PO
     Route: 048
     Dates: start: 20041104
  3. ASPIRIN [Concomitant]
  4. LEVOTHROID [Concomitant]
  5. POTASSIUM [Concomitant]
  6. LIPITOR [Concomitant]
  7. LASIX [Concomitant]
  8. SPIRINOLACTONE [Concomitant]
  9. TOPROL-XL [Concomitant]
  10. SYNTHROID [Concomitant]
  11. COUMADIN [Concomitant]
  12. AMBIEN [Concomitant]
  13. PROTONIX [Concomitant]
  14. METOPROLOL [Concomitant]
  15. LISINOPRIL [Concomitant]

REACTIONS (2)
  - DEHYDRATION [None]
  - URINARY TRACT INFECTION [None]
